FAERS Safety Report 21708096 (Version 6)
Quarter: 2023Q2

REPORT INFORMATION
  Report Type: Spontaneous
  Country: FR (occurrence: FR)
  Receive Date: 20221209
  Receipt Date: 20230612
  Transmission Date: 20230721
  Serious: Yes (Hospitalization, Other)
  Sender: FDA-Public Use
  Company Number: FR-PFIZER INC-PV202200112078

PATIENT
  Age: 63 Year
  Sex: Male
  Weight: 69 kg

DRUGS (25)
  1. DEXAMETHASONE [Suspect]
     Active Substance: DEXAMETHASONE
     Indication: Product used for unknown indication
     Dates: start: 20220804, end: 20221020
  2. HYDROXYZINE [Concomitant]
     Active Substance: HYDROXYZINE HYDROCHLORIDE
     Indication: Product used for unknown indication
     Route: 065
     Dates: start: 20220816
  3. POTASSIUM CHLORIDE [Concomitant]
     Active Substance: POTASSIUM CHLORIDE
     Indication: Product used for unknown indication
     Route: 065
     Dates: start: 20220915
  4. DARATUMUMAB [Concomitant]
     Active Substance: DARATUMUMAB
     Indication: Product used for unknown indication
     Route: 065
     Dates: start: 20220804
  5. LENALIDOMIDE [Concomitant]
     Active Substance: LENALIDOMIDE
     Indication: Product used for unknown indication
     Route: 065
     Dates: start: 20220915
  6. ESOMEPRAZOLE [Concomitant]
     Active Substance: ESOMEPRAZOLE
     Indication: Product used for unknown indication
     Route: 065
     Dates: start: 20220721
  7. PENICILLIN V BENZATHINE [Concomitant]
     Active Substance: PENICILLIN V BENZATHINE
     Indication: Product used for unknown indication
     Route: 065
     Dates: start: 20220624
  8. FUROSEMIDE [Concomitant]
     Active Substance: FUROSEMIDE
     Indication: Product used for unknown indication
     Route: 065
     Dates: start: 20220915, end: 20221020
  9. DAPAGLIFLOZIN [Concomitant]
     Active Substance: DAPAGLIFLOZIN
     Indication: Product used for unknown indication
     Dosage: DOSE DESC: UNK
     Route: 065
     Dates: start: 20221013, end: 20221029
  10. LEUCOVORIN CALCIUM [Concomitant]
     Active Substance: LEUCOVORIN CALCIUM
     Indication: Product used for unknown indication
     Route: 065
     Dates: start: 20220610
  11. ONDANSETRON [Concomitant]
     Active Substance: ONDANSETRON
     Indication: Product used for unknown indication
     Route: 065
     Dates: start: 20220629
  12. OXAZEPAM [Concomitant]
     Active Substance: OXAZEPAM
     Indication: Product used for unknown indication
     Route: 065
     Dates: start: 20220603
  13. MIDODRINE [Concomitant]
     Active Substance: MIDODRINE
     Indication: Product used for unknown indication
     Dosage: DOSE DESC: UNK
     Route: 065
     Dates: start: 20220915, end: 20221116
  14. ALDACTONE [Concomitant]
     Active Substance: SPIRONOLACTONE
     Indication: Product used for unknown indication
     Route: 065
     Dates: start: 20220902, end: 20221110
  15. FUNGIZONE [Concomitant]
     Active Substance: AMPHOTERICIN B
     Indication: Product used for unknown indication
     Route: 065
     Dates: start: 20220825
  16. APIXABAN [Concomitant]
     Active Substance: APIXABAN
     Indication: Product used for unknown indication
     Route: 065
     Dates: start: 20220818
  17. SODIUM BICARBONATE [Concomitant]
     Active Substance: SODIUM BICARBONATE
     Indication: Product used for unknown indication
     Dates: start: 20220825
  18. PENTAMIDINE [Concomitant]
     Active Substance: PENTAMIDINE
     Indication: Product used for unknown indication
     Route: 065
     Dates: start: 20220818
  19. DESLORATADINE [Concomitant]
     Active Substance: DESLORATADINE
     Indication: Product used for unknown indication
     Route: 065
     Dates: start: 20220901
  20. BORTEZOMIB [Suspect]
     Active Substance: BORTEZOMIB
     Indication: Chemotherapy
     Dosage: TIME INTERVAL: CYCLICAL: ON DAYS 1 AND 15 OF 28 DAY CYCLE
     Route: 058
     Dates: start: 20221109, end: 20221122
  21. BORTEZOMIB [Suspect]
     Active Substance: BORTEZOMIB
     Indication: Chemotherapy
     Dosage: TIME INTERVAL: CYCLICAL: ON DAYS 1, 8, 15, 22 OF 28 DAY CYCLE
     Route: 058
     Dates: start: 20220930, end: 20221028
  22. INVESTIGATIONAL PRODUCT [Suspect]
     Active Substance: INVESTIGATIONAL PRODUCT
     Indication: Primary amyloidosis
     Route: 065
     Dates: start: 20221123, end: 20221123
  23. INVESTIGATIONAL PRODUCT [Suspect]
     Active Substance: INVESTIGATIONAL PRODUCT
     Indication: Primary amyloidosis
     Route: 065
     Dates: start: 20220930, end: 20220930
  24. INVESTIGATIONAL PRODUCT [Suspect]
     Active Substance: INVESTIGATIONAL PRODUCT
     Indication: Primary amyloidosis
     Route: 065
     Dates: start: 20220609, end: 20220609
  25. DEXAMETHASONE [Suspect]
     Active Substance: DEXAMETHASONE

REACTIONS (2)
  - Dyspnoea [Recovered/Resolved]
  - Hypotension [Recovered/Resolved with Sequelae]

NARRATIVE: CASE EVENT DATE: 20221020
